FAERS Safety Report 12056638 (Version 9)
Quarter: 2017Q1

REPORT INFORMATION
  Report Type: Report from Study
  Country: US (occurrence: US)
  Receive Date: 20160209
  Receipt Date: 20170322
  Transmission Date: 20170428
  Serious: Yes (Hospitalization)
  Sender: FDA-Public Use
  Company Number: US-ACTELION-A-US2015-128038

PATIENT
  Age: 70 Year
  Sex: Male
  Weight: 66.67 kg

DRUGS (16)
  1. MIRTAZAPINE. [Concomitant]
     Active Substance: MIRTAZAPINE
     Dosage: 15 MG, QPM
     Route: 048
  2. DOXEPIN [Concomitant]
     Active Substance: DOXEPIN
     Dosage: 10 MG, QD
     Route: 048
  3. CHOLECALCIFEROL [Concomitant]
     Active Substance: CHOLECALCIFEROL
     Dosage: 1000 IU, QD
     Route: 048
  4. LEVOTHYROXINE. [Concomitant]
     Active Substance: LEVOTHYROXINE
     Dosage: 50 MCG, QD
     Route: 048
  5. LEVOTHYROXINE. [Concomitant]
     Active Substance: LEVOTHYROXINE
     Dosage: 75 MCG, QD
     Route: 048
  6. ASA [Concomitant]
     Active Substance: ASPIRIN
     Dosage: 81 MG, QD
     Route: 048
  7. BUMEX [Concomitant]
     Active Substance: BUMETANIDE
     Dosage: 0.5-2.5 MG, PRN
     Route: 048
  8. NEXIUM [Concomitant]
     Active Substance: ESOMEPRAZOLE MAGNESIUM
     Dosage: 40 MG, QD
     Route: 048
  9. IRON [Concomitant]
     Active Substance: IRON
     Dosage: 325 MG, TID
     Route: 048
  10. SILDENAFIL. [Concomitant]
     Active Substance: SILDENAFIL
     Indication: PULMONARY ARTERIAL HYPERTENSION
     Dosage: 10 MG, TID
     Route: 048
  11. ATORVASTATIN [Concomitant]
     Active Substance: ATORVASTATIN
     Dosage: 20 MG, QD
     Route: 048
  12. CELLCEPT [Concomitant]
     Active Substance: MYCOPHENOLATE MOFETIL\MYCOPHENOLATE MOFETIL HYDROCHLORIDE
     Dosage: 1000 MG, BID
     Route: 048
  13. VELETRI [Suspect]
     Active Substance: EPOPROSTENOL
     Dosage: 10 NG/KG, PER MIN
     Route: 042
     Dates: start: 20151118
  14. LETAIRIS [Concomitant]
     Active Substance: AMBRISENTAN
     Dosage: 5 MG, QD
     Route: 048
  15. VELETRI [Suspect]
     Active Substance: EPOPROSTENOL
     Indication: PULMONARY HYPERTENSION
     Dosage: 36.1 NG/KG, PER MIN
     Route: 042
  16. OXYGEN. [Concomitant]
     Active Substance: OXYGEN
     Dosage: 3-4 L/MIN, UNK

REACTIONS (17)
  - Pulmonary arterial hypertension [Unknown]
  - Pneumonia aspiration [Recovered/Resolved]
  - Septic shock [Unknown]
  - Interstitial lung disease [Unknown]
  - Dyspnoea [Unknown]
  - Pain in jaw [Unknown]
  - Nausea [Unknown]
  - Systemic scleroderma [Unknown]
  - Influenza [Unknown]
  - Insomnia [Unknown]
  - Endotracheal intubation [Unknown]
  - Headache [Unknown]
  - Abdominal discomfort [Unknown]
  - Pulmonary fibrosis [Unknown]
  - Respiratory failure [Unknown]
  - Pruritus generalised [Unknown]
  - Pneumonia [Unknown]

NARRATIVE: CASE EVENT DATE: 20160112
